FAERS Safety Report 17222135 (Version 5)
Quarter: 2020Q1

REPORT INFORMATION
  Report Type: Spontaneous
  Country: JP (occurrence: JP)
  Receive Date: 20200101
  Receipt Date: 20200317
  Transmission Date: 20200409
  Serious: Yes (Death)
  Sender: FDA-Public Use
  Company Number: JP-ROCHE-2502487

PATIENT
  Age: 68 Year
  Sex: Male
  Weight: 57.9 kg

DRUGS (1)
  1. LUCENTIS [Suspect]
     Active Substance: RANIBIZUMAB
     Indication: DIABETIC RETINAL OEDEMA
     Route: 031
     Dates: start: 20190919, end: 20190919

REACTIONS (1)
  - Chest pain [Fatal]

NARRATIVE: CASE EVENT DATE: 20191119
